FAERS Safety Report 6611600-2 (Version None)
Quarter: 2010Q1

REPORT INFORMATION
  Report Type: 
  Country: None (occurrence: None)
  Receive Date: 20100303
  Receipt Date: 20100223
  Transmission Date: 20100710
  Serious: Yes (Other)
  Sender: FDA-Public Use
  Company Number: ZA-SANOFI-AVENTIS-2010SA009564

PATIENT
  Age: 55 Year
  Sex: Female

DRUGS (9)
  1. STILNOX [Suspect]
     Route: 048
  2. STILNOX [Interacting]
     Dosage: DOSE DECREASED (NOS).
     Route: 048
  3. KETEK [Interacting]
     Indication: ANTIBIOTIC THERAPY
     Route: 048
     Dates: start: 20100210, end: 20100214
  4. KETEK [Interacting]
     Route: 048
     Dates: start: 20100210, end: 20100214
  5. SUDAFED 12 HOUR [Concomitant]
     Dosage: FOR 2-3 DAYS.
     Route: 048
     Dates: start: 20100211
  6. NEXIUM /UNK/ [Concomitant]
     Indication: DRUG USE FOR UNKNOWN INDICATION
     Route: 048
  7. ZIAK [Concomitant]
     Indication: DRUG USE FOR UNKNOWN INDICATION
     Route: 048
  8. ESTROGENS CONJUGATED [Concomitant]
     Indication: DRUG USE FOR UNKNOWN INDICATION
     Route: 048
  9. SYNAP FORTE [Concomitant]
     Indication: PAIN
     Route: 048

REACTIONS (5)
  - DRUG ABUSE [None]
  - DRUG INTERACTION [None]
  - IMPAIRED DRIVING ABILITY [None]
  - ROAD TRAFFIC ACCIDENT [None]
  - SOMNOLENCE [None]
